FAERS Safety Report 12674898 (Version 4)
Quarter: 2022Q2

REPORT INFORMATION
  Report Type: Other
  Country: US (occurrence: None)
  Receive Date: 20160823
  Receipt Date: 20220615
  Transmission Date: 20220721
  Serious: Yes (Other)
  Sender: FDA-Public Use
  Company Number: US-ROCHE-1548883

PATIENT
  Age: 69 Year
  Sex: Female
  Weight: 42.91 kg

DRUGS (48)
  1. NUTROPIN AQ [Suspect]
     Active Substance: SOMATROPIN
     Indication: Hypopituitarism
     Route: 058
  2. CELLCEPT [Suspect]
     Active Substance: MYCOPHENOLATE MOFETIL
     Indication: Polymyositis
     Route: 048
  3. CELLCEPT [Suspect]
     Active Substance: MYCOPHENOLATE MOFETIL
     Indication: Myalgia
     Dosage: 13/AUG/2015,  1TAB DAILYX 1 WEEKTHEN 2 TABX1 1WK
     Route: 048
  4. CELLCEPT [Suspect]
     Active Substance: MYCOPHENOLATE MOFETIL
     Indication: Myositis
  5. CELLCEPT [Suspect]
     Active Substance: MYCOPHENOLATE MOFETIL
     Indication: Connective tissue disorder
  6. PRASTERONE [Concomitant]
     Active Substance: PRASTERONE
     Route: 048
  7. DICYCLOMINE [Concomitant]
     Active Substance: DICYCLOMINE HYDROCHLORIDE
  8. RECLAST [Concomitant]
     Active Substance: ZOLEDRONIC ACID
     Route: 042
     Dates: start: 200807
  9. CORTEF [Concomitant]
     Active Substance: HYDROCORTISONE
     Dosage: 20 MG AM, 20 MG PM
  10. SYNTHROID [Concomitant]
     Active Substance: LEVOTHYROXINE SODIUM
     Route: 048
  11. CYTOMEL [Concomitant]
     Active Substance: LIOTHYRONINE SODIUM
     Route: 048
  12. FLORINEF ACETATE [Concomitant]
     Active Substance: FLUDROCORTISONE ACETATE
  13. DDAVP [Concomitant]
     Active Substance: DESMOPRESSIN ACETATE
  14. PANCREASE CAPS [Concomitant]
  15. CYMBALTA [Concomitant]
     Active Substance: DULOXETINE HYDROCHLORIDE
  16. KLOR-CON [Concomitant]
     Active Substance: POTASSIUM CHLORIDE
  17. ULTRAM [Concomitant]
     Active Substance: TRAMADOL HYDROCHLORIDE
  18. LYRICA [Concomitant]
     Active Substance: PREGABALIN
  19. TOPROL XL [Concomitant]
     Active Substance: METOPROLOL SUCCINATE
     Dosage: AS NEEDED
  20. NITROGLYCERIN [Concomitant]
     Active Substance: NITROGLYCERIN
  21. NORVASC [Concomitant]
     Active Substance: AMLODIPINE BESYLATE
  22. PREVACID [Concomitant]
     Active Substance: LANSOPRAZOLE
  23. ALLEGRA-D [Concomitant]
     Active Substance: FEXOFENADINE HYDROCHLORIDE\PSEUDOEPHEDRINE HYDROCHLORIDE
  24. NASONEX [Concomitant]
     Active Substance: MOMETASONE FUROATE
     Route: 045
  25. CELEBREX [Concomitant]
     Active Substance: CELECOXIB
  26. LEVOCARNITINE [Concomitant]
     Active Substance: LEVOCARNITINE
  27. FAMVIR [Concomitant]
     Active Substance: FAMCICLOVIR
  28. LODINE [Concomitant]
     Active Substance: ETODOLAC
  29. PROVIGIL [Concomitant]
     Active Substance: MODAFINIL
  30. REGLAN [Concomitant]
     Active Substance: METOCLOPRAMIDE HYDROCHLORIDE
  31. DOXYCYCLINE [Concomitant]
     Active Substance: DOXYCYCLINE
  32. PLAQUENIL [Concomitant]
     Active Substance: HYDROXYCHLOROQUINE SULFATE
  33. ESTRACE [Concomitant]
     Active Substance: ESTRADIOL
  34. CREON [Concomitant]
     Active Substance: PANCRELIPASE AMYLASE\PANCRELIPASE LIPASE\PANCRELIPASE PROTEASE
  35. VOLTAREN [Concomitant]
     Active Substance: DICLOFENAC SODIUM
  36. ULTRAVATE OINTMENT [Concomitant]
  37. ZETIA [Concomitant]
     Active Substance: EZETIMIBE
  38. PROMETRIUM [Concomitant]
     Active Substance: PROGESTERONE
  39. TRIAMCINOLONE ACETONIDE [Concomitant]
     Active Substance: TRIAMCINOLONE ACETONIDE
  40. TESTOSTERONE [Concomitant]
     Active Substance: TESTOSTERONE
  41. OMEGA 3 [Concomitant]
     Active Substance: CAPSAICIN
  42. SULFACETAMIDE SODIUM [Concomitant]
     Active Substance: SULFACETAMIDE SODIUM
  43. INSULIN NOS [Concomitant]
     Active Substance: INSULIN NOS
  44. CALCIUM CARBONATE [Concomitant]
     Active Substance: CALCIUM CARBONATE
     Route: 048
  45. TRETINOIN [Concomitant]
     Active Substance: TRETINOIN
  46. FISH OIL [Concomitant]
     Active Substance: FISH OIL
     Route: 048
  47. VITAMIN D3 [Concomitant]
     Active Substance: CHOLECALCIFEROL
  48. RETIN-A MICRO [Concomitant]
     Active Substance: TRETINOIN

REACTIONS (51)
  - Herpes simplex [Unknown]
  - Peroneal nerve palsy [Unknown]
  - Neck pain [Unknown]
  - Diarrhoea [Unknown]
  - Constipation [Unknown]
  - Arthralgia [Unknown]
  - Micturition urgency [Unknown]
  - Myalgia [Unknown]
  - Dizziness [Unknown]
  - Asthenia [Unknown]
  - Upper limb fracture [Unknown]
  - Muscular weakness [Unknown]
  - Insulin-like growth factor decreased [Not Recovered/Not Resolved]
  - Extra dose administered [Unknown]
  - Injection site discolouration [Recovered/Resolved]
  - Visual impairment [Unknown]
  - Alopecia [Unknown]
  - Trichorrhexis [Unknown]
  - Muscle disorder [Unknown]
  - Thyroid disorder [Unknown]
  - Off label use [Unknown]
  - Cachexia [Unknown]
  - Malnutrition [Unknown]
  - Blood creatinine decreased [Unknown]
  - Blood urea nitrogen/creatinine ratio increased [Unknown]
  - Protein total decreased [Unknown]
  - Immunoglobulins decreased [Unknown]
  - Gastrointestinal inflammation [Unknown]
  - Lymphocyte count decreased [Unknown]
  - Vitamin D deficiency [Unknown]
  - Blood zinc decreased [Unknown]
  - Neutrophil count increased [Unknown]
  - Monocyte count decreased [Unknown]
  - Eosinophil count decreased [Unknown]
  - CD8 lymphocytes increased [Unknown]
  - Natural killer cell count increased [Unknown]
  - Natural killer cell count decreased [Unknown]
  - CD4 lymphocytes decreased [Unknown]
  - CD4 lymphocytes increased [Unknown]
  - T-lymphocyte count decreased [Unknown]
  - CD19 lymphocytes decreased [Unknown]
  - Malabsorption [Unknown]
  - Abnormal loss of weight [Unknown]
  - Myositis [Unknown]
  - Dyspnoea [Unknown]
  - Tri-iodothyronine increased [Unknown]
  - Alanine aminotransferase increased [Unknown]
  - Aspartate aminotransferase increased [Unknown]
  - Narcolepsy [Not Recovered/Not Resolved]
  - Haemorrhage [Unknown]
  - Product dose omission issue [Unknown]

NARRATIVE: CASE EVENT DATE: 20150507
